FAERS Safety Report 8418018-0 (Version None)
Quarter: 2012Q2

REPORT INFORMATION
  Report Type: 
  Country: None (occurrence: None)
  Receive Date: 20120607
  Receipt Date: 20120528
  Transmission Date: 20120825
  Serious: Yes (Hospitalization)
  Sender: FDA-Public Use
  Company Number: JP-JNJFOC-20120412955

PATIENT
  Sex: Female
  Weight: 67 kg

DRUGS (20)
  1. ASACOL [Concomitant]
     Indication: COLITIS ULCERATIVE
     Route: 048
  2. REMICADE [Suspect]
     Dosage: 8TH DOSE
     Route: 042
     Dates: start: 20111110
  3. REMICADE [Suspect]
     Dosage: 4TH DOSE
     Route: 042
     Dates: start: 20101019
  4. LOXONIN [Concomitant]
     Indication: COLITIS ULCERATIVE
     Dosage: 60 MG
     Route: 048
  5. SALAZOPYRIN [Concomitant]
     Route: 065
  6. RABEPRAZOLE SODIUM [Concomitant]
     Indication: GASTRITIS
     Route: 048
  7. REMICADE [Suspect]
     Indication: COLITIS ULCERATIVE
     Dosage: NINTH DOSE
     Route: 042
     Dates: start: 20120105
  8. REMICADE [Suspect]
     Dosage: TENTH DOSE
     Route: 042
     Dates: start: 20120301
  9. IMURAN [Concomitant]
     Indication: COLITIS ULCERATIVE
     Route: 048
     Dates: start: 20120420, end: 20120422
  10. IMURAN [Concomitant]
     Route: 048
     Dates: start: 20120417, end: 20120419
  11. REMICADE [Suspect]
     Dosage: FIRST DOSE
     Route: 042
     Dates: start: 20100712
  12. PREDNISOLONE [Concomitant]
     Route: 065
  13. PENTASA [Concomitant]
     Route: 065
  14. REMICADE [Suspect]
     Dosage: FIFTH DOSE
     Route: 042
     Dates: start: 20110803
  15. PROGRAF [Concomitant]
     Route: 065
     Dates: start: 20110101, end: 20110601
  16. IMURAN [Concomitant]
     Dosage: 23 MG
     Route: 048
     Dates: start: 20111208, end: 20120416
  17. IMURAN [Concomitant]
     Route: 048
     Dates: start: 20120423
  18. MYONAL [Concomitant]
     Indication: MUSCLE TIGHTNESS
     Dosage: 150 MG
     Route: 048
  19. MUCOSTA [Concomitant]
     Indication: GASTRITIS
     Dosage: 100 MG
     Route: 048
  20. CEFAZOLIN SODIUM [Concomitant]
     Indication: COLITIS ULCERATIVE
     Dosage: 2 G
     Route: 048

REACTIONS (4)
  - ERYTHEMA NODOSUM [None]
  - SKIN ULCER [None]
  - VASCULITIS [None]
  - THERAPEUTIC RESPONSE DECREASED [None]
